FAERS Safety Report 13855794 (Version 1)
Quarter: 2017Q3

REPORT INFORMATION
  Report Type: Spontaneous
  Country: US (occurrence: US)
  Receive Date: 20170810
  Receipt Date: 20170810
  Transmission Date: 20171127
  Serious: Yes (Other)
  Sender: FDA-Public Use
  Company Number: US-MYLANLABS-2017M1047601

PATIENT

DRUGS (1)
  1. PHENYTOIN MYLAN [Suspect]
     Active Substance: PHENYTOIN
     Indication: SEIZURE
     Dosage: 100 MG, TID
     Route: 048
     Dates: start: 20170615

REACTIONS (2)
  - Seizure [Not Recovered/Not Resolved]
  - Product physical issue [None]

NARRATIVE: CASE EVENT DATE: 201706
